FAERS Safety Report 8506755-9 (Version None)
Quarter: 2012Q3

REPORT INFORMATION
  Report Type: 
  Country: None (occurrence: None)
  Receive Date: 20120712
  Receipt Date: 20120706
  Transmission Date: 20120928
  Serious: No
  Sender: FDA-Public Use
  Company Number: US-PFIZER INC-2012163814

PATIENT
  Sex: Female

DRUGS (1)
  1. NEURONTIN [Suspect]
     Indication: CYSTITIS
     Dosage: 30 MG, 1X/DAY
     Route: 048
     Dates: start: 20100701

REACTIONS (3)
  - OFF LABEL USE [None]
  - DIZZINESS [None]
  - INCORRECT DOSE ADMINISTERED [None]
